FAERS Safety Report 4361142-2 (Version None)
Quarter: 2004Q2

REPORT INFORMATION
  Report Type: 
  Country: None (occurrence: None)
  Receive Date: 20040511
  Receipt Date: 20031216
  Transmission Date: 20050107
  Serious: Yes (Hospitalization)
  Sender: FDA-Public Use
  Company Number: USA031254761

PATIENT
  Age: 35 Year
  Sex: Female

DRUGS (3)
  1. PROZAC [Suspect]
     Indication: DEPRESSION
     Dosage: 20 MG/1 DAY
     Dates: start: 20001217
  2. VITAMIN E [Concomitant]
  3. FISH OIL [Concomitant]

REACTIONS (2)
  - DYSPNOEA [None]
  - MENSTRUAL DISORDER [None]
